FAERS Safety Report 19698357 (Version 1)
Quarter: 2021Q3

REPORT INFORMATION
  Report Type: Spontaneous
  Country: US (occurrence: US)
  Receive Date: 20210813
  Receipt Date: 20210813
  Transmission Date: 20211014
  Serious: Yes (Other)
  Sender: FDA-Public Use
  Company Number: None

PATIENT
  Age: 21 Year
  Sex: Female
  Weight: 184 kg

DRUGS (1)
  1. NEUTROGENA BEACH DEFENSE SPF 70 [Suspect]
     Active Substance: AVOBENZONE\HOMOSALATE\OCTISALATE\OCTOCRYLENE
     Indication: PROPHYLAXIS AGAINST SOLAR RADIATION
     Dosage: ?          OTHER STRENGTH:SPF;?
     Route: 061
     Dates: start: 20210808, end: 20210808

REACTIONS (4)
  - Blister [None]
  - Skin injury [None]
  - Chemical burn [None]
  - Exposure to toxic agent [None]

NARRATIVE: CASE EVENT DATE: 20210808
